FAERS Safety Report 5822659-4 (Version None)
Quarter: 2008Q3

REPORT INFORMATION
  Report Type: 
  Country: None (occurrence: None)
  Receive Date: 20080725
  Receipt Date: 20080716
  Transmission Date: 20090109
  Serious: Yes (Other)
  Sender: FDA-Public Use
  Company Number: JP-BRISTOL-MYERS SQUIBB COMPANY-14275796

PATIENT
  Age: 55 Year
  Sex: Female

DRUGS (6)
  1. ENDOXAN [Suspect]
     Indication: DIFFUSE LARGE B-CELL LYMPHOMA
     Dates: start: 20070201
  2. PREDONINE [Suspect]
     Indication: DERMATOMYOSITIS
     Dosage: RECEIVED 8 COURSES.
     Route: 048
     Dates: start: 20060101
  3. PREDONINE [Suspect]
     Indication: DIFFUSE LARGE B-CELL LYMPHOMA
     Dosage: RECEIVED 8 COURSES.
     Route: 048
     Dates: start: 20060101
  4. PIRARUBICIN [Concomitant]
  5. VINCRISTINE SULFATE [Concomitant]
  6. RITUXIMAB [Concomitant]

REACTIONS (1)
  - PROGRESSIVE MULTIFOCAL LEUKOENCEPHALOPATHY [None]
